FAERS Safety Report 15781677 (Version 1)
Quarter: 2019Q1

REPORT INFORMATION
  Report Type: Spontaneous
  Country: US (occurrence: US)
  Receive Date: 20190102
  Receipt Date: 20190102
  Transmission Date: 20190417
  Serious: No
  Sender: FDA-Public Use
  Company Number: US-PFIZER INC-2018532301

PATIENT
  Age: 60 Year
  Sex: Female

DRUGS (1)
  1. XELJANZ XR [Suspect]
     Active Substance: TOFACITINIB CITRATE
     Dosage: 11 MG, DAILY

REACTIONS (7)
  - Joint swelling [Unknown]
  - Condition aggravated [Unknown]
  - Drug ineffective [Unknown]
  - Malaise [Unknown]
  - Sinusitis [Unknown]
  - Urinary tract infection [Unknown]
  - Fatigue [Unknown]
